FAERS Safety Report 7104591-1 (Version None)
Quarter: 2010Q4

REPORT INFORMATION
  Report Type: 
  Country: None (occurrence: None)
  Receive Date: 20101108
  Receipt Date: 20101027
  Transmission Date: 20110411
  Serious: Yes (Hospitalization)
  Sender: FDA-Public Use
  Company Number: 8054508

PATIENT
  Sex: Male

DRUGS (7)
  1. CIMZIA [Suspect]
     Indication: CROHN'S DISEASE
     Dosage: SEE IMAGE
     Route: 058
     Dates: start: 20040326, end: 20040423
  2. CIMZIA [Suspect]
     Indication: CROHN'S DISEASE
     Dosage: SEE IMAGE
     Route: 058
     Dates: start: 20040521, end: 20040910
  3. CIMZIA [Suspect]
     Indication: CROHN'S DISEASE
     Dosage: SEE IMAGE
     Route: 058
     Dates: start: 20040924
  4. TYLENOL /000200001/ [Concomitant]
  5. TRICOR [Concomitant]
  6. LOVAZA [Concomitant]
  7. FISH OIL [Concomitant]

REACTIONS (1)
  - ABDOMINAL HERNIA [None]
